FAERS Safety Report 10179399 (Version 1)
Quarter: 2014Q2

REPORT INFORMATION
  Report Type: Spontaneous
  Country: CL (occurrence: CL)
  Receive Date: 20140519
  Receipt Date: 20140519
  Transmission Date: 20141212
  Serious: Yes (Other)
  Sender: FDA-Public Use
  Company Number: CL-PFIZER INC-2014133138

PATIENT
  Age: 69 Year
  Sex: Female

DRUGS (2)
  1. XALATAN [Suspect]
     Indication: OCULAR HYPERTENSION
     Dosage: UNK
     Dates: start: 2001
  2. AZOPT [Concomitant]
     Dosage: UNK

REACTIONS (2)
  - Cataract [Recovered/Resolved]
  - Hypertension [Unknown]
